FAERS Safety Report 5361053-X (Version None)
Quarter: 2007Q2

REPORT INFORMATION
  Report Type: 
  Country: None (occurrence: None)
  Receive Date: 20070618
  Receipt Date: 20070606
  Transmission Date: 20071010
  Serious: Yes (Other)
  Sender: FDA-Public Use
  Company Number: US-PFIZER INC-2007047433

PATIENT
  Sex: Female

DRUGS (2)
  1. CHANTIX [Suspect]
  2. ANTIHYPERTENSIVES [Concomitant]

REACTIONS (1)
  - BLOOD PRESSURE INCREASED [None]
